FAERS Safety Report 24618102 (Version 1)
Quarter: 2024Q4

REPORT INFORMATION
  Report Type: Spontaneous
  Country: FR (occurrence: FR)
  Receive Date: 20241114
  Receipt Date: 20241114
  Transmission Date: 20250115
  Serious: Yes (Hospitalization, Other)
  Sender: CHEPLAPHARM
  Company Number: None

PATIENT
  Age: 13 Year
  Sex: Male

DRUGS (17)
  1. CLONAZEPAM [Suspect]
     Active Substance: CLONAZEPAM
     Dosage: RIVOTRIL (CLONAZEPAM) 2 MG: 5/DAY ?DAILY DOSE: 10 MILLIGRAM
     Route: 048
  2. PREGABALIN [Suspect]
     Active Substance: PREGABALIN
     Dosage: PREGABALIN: 300 MG: 5/DAY?DAILY DOSE: 1500 MILLIGRAM
     Route: 048
  3. PREGABALIN [Suspect]
     Active Substance: PREGABALIN
     Dosage: PREGABALIN MAX 600 MG/D (TO BE WITHIN THE AMM) ?DAILY DOSE: 600 MILLIGRAM
  4. DIAZEPAM [Suspect]
     Active Substance: DIAZEPAM
     Dosage: DIAZEPAM 10 MG: 3/DAY?DAILY DOSE: 30 MILLIGRAM
     Route: 048
  5. DIAZEPAM [Suspect]
     Active Substance: DIAZEPAM
     Dosage: DIAZEPAM 10 MG UP TO 6 CP/D ?DAILY DOSE: 6 DOSAGE FORM
  6. TRIMEPRAZINE [Suspect]
     Active Substance: TRIMEPRAZINE
     Route: 048
  7. TRIMEPRAZINE [Suspect]
     Active Substance: TRIMEPRAZINE
     Dosage: THERALENE 5 MG 1 TABLET IN THE EVENING AT BEDTIME IF REQUIRED?DAILY DOSE: 1 DOSAGE FORM
     Route: 048
  8. TRIMEPRAZINE [Suspect]
     Active Substance: TRIMEPRAZINE
     Dosage: THERALENE 5 MG 1 TABLET IN THE EVENING AT BEDTIME IF REQUIRED
     Route: 048
  9. TRIMEPRAZINE [Suspect]
     Active Substance: TRIMEPRAZINE
     Dosage: THERALENE (INGESTION OF 5 X 5 MG TABLETS)
     Route: 048
  10. LYRICA [Suspect]
     Active Substance: PREGABALIN
     Dosage: LYRICA 100 MG EVERY 4 HOURS?DAILY DOSE: 600 MILLIGRAM
  11. VALIUM [Suspect]
     Active Substance: DIAZEPAM
     Dosage: VALIUM 10 MG 2/D ?DAILY DOSE: 20 MILLIGRAM
  12. VALIUM [Suspect]
     Active Substance: DIAZEPAM
     Dosage: VALIUM (5 TIMES A DAY).?DAILY DOSE: 50 MILLIGRAM
  13. VALIUM [Suspect]
     Active Substance: DIAZEPAM
     Dosage: VALIUM (5 TIMES A DAY EVERY 4 HOURS FROM 7AM)?DAILY DOSE: 60 MILLIGRAM
  14. NICOTINE [Suspect]
     Active Substance: NICOTINE
     Dosage: NICOTINE PATCHES (7 MG)
  15. CANNABIS SATIVA SUBSP. INDICA TOP [Suspect]
     Active Substance: CANNABIS SATIVA SUBSP. INDICA TOP
  16. ACETAMINOPHEN [Suspect]
     Active Substance: ACETAMINOPHEN
  17. CYAMEMAZINE [Suspect]
     Active Substance: CYAMEMAZINE
     Dosage: DRINK 25 MG TERCIAN
     Route: 048

REACTIONS (14)
  - Drug dependence [Unknown]
  - Withdrawal syndrome [Unknown]
  - Malaise [Recovered/Resolved]
  - Substance dependence [Unknown]
  - Epilepsy [Unknown]
  - Confusional state [Unknown]
  - Drug abuse [Unknown]
  - Coma [Unknown]
  - Wound [Unknown]
  - Behaviour disorder [Unknown]
  - Alcoholism [Unknown]
  - Wound [Unknown]
  - Dyspraxia [Unknown]
  - Somnolence [Recovered/Resolved]

NARRATIVE: CASE EVENT DATE: 20240101
